FAERS Safety Report 21196059 (Version 2)
Quarter: 2022Q4

REPORT INFORMATION
  Report Type: Spontaneous
  Country: US (occurrence: US)
  Receive Date: 20220810
  Receipt Date: 20221011
  Transmission Date: 20230113
  Serious: Yes (Other)
  Sender: FDA-Public Use
  Company Number: US-PFIZER INC-202201048922

PATIENT
  Age: 95 Year
  Sex: Female
  Weight: 54.422 kg

DRUGS (23)
  1. PAXLOVID [Suspect]
     Active Substance: NIRMATRELVIR\RITONAVIR
     Indication: COVID-19 treatment
     Dosage: UNK 2X/DAY
     Route: 048
     Dates: start: 20220729, end: 20220802
  2. SIMVASTATIN [Suspect]
     Active Substance: SIMVASTATIN
     Dosage: 20 MG (SIMVASTATIN 20 MG ORAL TABLET; TAKE 1 TABLET AT BEDTIME )
     Route: 048
     Dates: start: 20211018
  3. MOMETASONE FUROATE [Suspect]
     Active Substance: MOMETASONE FUROATE
     Dosage: UNK, 2X/DAY (PLACE 1 DROP IN AFFECTED EAR TWICE DAILY FOR 1 WEEK)
  4. ASPIRIN [Concomitant]
     Active Substance: ASPIRIN
     Dosage: 81 MG, DAILY (CHEW AND SWALLOW 1 TABLET DAILY)
     Dates: start: 20211018
  5. ATENOLOL [Concomitant]
     Active Substance: ATENOLOL
     Dosage: 50 MG, DAILY (TAKE 1 TABLET DAILY)
     Route: 048
     Dates: start: 20211018
  6. BIOTIN [Concomitant]
     Active Substance: BIOTIN
     Dosage: 1000 UG, DAILY (TAKE 1 TABLET DAILY)
     Route: 048
     Dates: start: 20211018
  7. BUSPIRONE HCL [Concomitant]
     Active Substance: BUSPIRONE HYDROCHLORIDE
     Dosage: 15 MG, DAILY (TAKE 1 TABLET DAILY)
     Route: 048
     Dates: start: 20220527
  8. COLACE [Concomitant]
     Active Substance: DOCUSATE SODIUM
     Dosage: 100 MG, DAILY
     Route: 048
     Dates: start: 20211130
  9. FLEET ENEMA [Concomitant]
     Active Substance: SODIUM PHOSPHATE, DIBASIC\SODIUM PHOSPHATE, MONOBASIC
     Dosage: UNK (7-19 GM/118ML RECTAL ENEMA; USE AS DIRECTED )
     Route: 054
     Dates: start: 20211103
  10. FLUCONAZOLE [Concomitant]
     Active Substance: FLUCONAZOLE
     Dosage: 150 MG (TAKE 1 TABLET WEEKLY TAKE ONE TAB WEEKLY X 4 WEEKS)
     Route: 048
     Dates: start: 20220812
  11. LACTULOSE [Concomitant]
     Active Substance: LACTULOSE
     Dosage: 15 ML, DAILY (TAKE 15ML BY MOUTH DAILY)
     Route: 048
     Dates: start: 20220822
  12. LEVOTHYROXINE SODIUM [Concomitant]
     Active Substance: LEVOTHYROXINE SODIUM
     Dosage: 50 UG, DAILY
     Route: 048
     Dates: start: 20211018
  13. MELATONIN [Concomitant]
     Active Substance: MELATONIN
     Indication: Sleep deficit
     Dosage: 10 MG, 1X/DAY (TAKE 1 TABLET AT NIGHT)
     Route: 048
     Dates: start: 20211018
  14. MEMANTINE [Concomitant]
     Active Substance: MEMANTINE
     Dosage: 5 MG, 2X/DAY (TAKE 1 TABLET MORNING AND NIGHT)
     Route: 048
     Dates: start: 20211018
  15. METFORMIN HYDROCHLORIDE [Concomitant]
     Active Substance: METFORMIN HYDROCHLORIDE
     Dosage: 500 MG, 2X/DAY (TAKE 1 TABLET TWICE DAILY WITH FOOD MIRALAX 17 GM/SCOOP ORAL POWDER; MIX 1 CAPFUL (1
     Route: 048
     Dates: start: 20211018
  16. MIRTAZAPINE [Concomitant]
     Active Substance: MIRTAZAPINE
     Dosage: 15 MG (TAKE 1 TABLET AT BEDTIME FOR APPETITE)
     Route: 048
     Dates: start: 20220812
  17. NYSTATIN [Concomitant]
     Active Substance: NYSTATIN
     Dosage: 100000 IU/G ((100000 UNIT/GM EXTERNAL POWDER; APPLY 2-3 TIMES DAILY TO AFFECTED AREA(S) ))
     Dates: start: 20220630
  18. PANTOPRAZOLE SODIUM [Concomitant]
     Active Substance: PANTOPRAZOLE SODIUM
     Dosage: 40 MG, DAILY (PANTOPRAZOLE SODIUM 40 MG ORAL TABLET DELAYED RELEASE; TAKE 1 TABLET BY MOUTH EVERYDAY
     Route: 048
     Dates: start: 20211018
  19. SENNA LEAF [Concomitant]
     Active Substance: SENNA LEAF
     Dosage: 8.6 MG (SENNA 8.6 MG ORAL TABLET; TAKE 2 TABLET BEDTIME )
     Route: 048
     Dates: start: 20211130
  20. VITAMIN D NOS [Concomitant]
     Active Substance: VITAMIN D NOS
     Dosage: 50 UG (VITAMIN D 50 MCG (2000 UT) ORAL TABLET; TAKE 1 TABLET BY MOUTH EVERY DAY)
     Route: 048
     Dates: start: 20211018
  21. MIRALAX [Concomitant]
     Active Substance: POLYETHYLENE GLYCOL 3350
     Dosage: UNK, DAILY (MIX 1 CAPFUL 17GMIN 8 OUNCES OF WATER, JUICE, OR TEA AND DRINK DAILY)
  22. PROLIA [Concomitant]
     Active Substance: DENOSUMAB
     Dosage: 60 MG/ML
     Route: 058
     Dates: start: 20211116
  23. QUETIAPINE FUMARATE [Concomitant]
     Active Substance: QUETIAPINE FUMARATE
     Dosage: UNK, DAILY (TAKE ONE-HALF TO ONE TABLET DAILY AT BEDTIME AS DIRECTED)
     Route: 048
     Dates: start: 20211104

REACTIONS (33)
  - Hypothyroidism [Unknown]
  - Type 2 diabetes mellitus [Unknown]
  - Hyperkalaemia [Unknown]
  - Macular degeneration [Unknown]
  - Delirium [Unknown]
  - Fatigue [Recovered/Resolved]
  - Dysgeusia [Recovered/Resolved]
  - Diarrhoea [Recovered/Resolved]
  - White blood cell count increased [Unknown]
  - Red blood cell count increased [Unknown]
  - Urinary sediment present [Unknown]
  - Anaemia [Unknown]
  - Skin candida [Unknown]
  - Urinary tract candidiasis [Unknown]
  - Cough [Unknown]
  - Insomnia [Unknown]
  - Skin ulcer [Unknown]
  - Cognitive disorder [Unknown]
  - Constipation [Unknown]
  - Decreased appetite [Unknown]
  - Dysphagia [Unknown]
  - Immunisation reaction [Unknown]
  - Generalised anxiety disorder [Unknown]
  - Hypoacusis [Unknown]
  - Hyperglycaemia [Unknown]
  - Hypertension [Unknown]
  - Hypotension [Unknown]
  - Lethargy [Unknown]
  - Nocturia [Unknown]
  - Osteoporosis [Unknown]
  - Urinary tract infection [Unknown]
  - Dyspnoea [Unknown]
  - Contraindicated product administered [Unknown]

NARRATIVE: CASE EVENT DATE: 20220101
